FAERS Safety Report 8627898 (Version 3)
Quarter: 2012Q4

REPORT INFORMATION
  Report Type: Report from Study
  Country: CA (occurrence: CA)
  Receive Date: 20120621
  Receipt Date: 20121107
  Transmission Date: 20130627
  Serious: Yes (Hospitalization, Other)
  Sender: FDA-Public Use
  Company Number: CA-BRISTOL-MYERS SQUIBB COMPANY-16684573

PATIENT
  Age: 42 Year
  Sex: Female

DRUGS (15)
  1. ORENCIA [Suspect]
     Indication: RHEUMATOID ARTHRITIS
     Dosage: May11-Jun11,1st on 08May12,Intd,
2nd inf on 05Jun12
11Oct12
     Route: 042
     Dates: start: 201105
  2. CELLCEPT [Concomitant]
  3. ADALAT [Concomitant]
  4. ENALAPRIL [Concomitant]
  5. HYDROXYCHLOROQUINE [Concomitant]
  6. VITAMIN D [Concomitant]
  7. LORAZEPAM [Concomitant]
  8. HYDROMORPHONE [Concomitant]
     Dosage: 6mg
  9. PREDNISONE [Concomitant]
  10. TYLENOL #3 [Concomitant]
  11. NORTRIPTYLINE [Concomitant]
  12. OMEPRAZOLE [Concomitant]
  13. BENADRYL [Concomitant]
     Dosage: after Orencia
  14. VENTOLIN [Concomitant]
  15. ATROVENT [Concomitant]

REACTIONS (2)
  - Systemic lupus erythematosus [Recovering/Resolving]
  - Inner ear inflammation [Recovering/Resolving]
